FAERS Safety Report 7863541-0 (Version None)
Quarter: 2011Q4

REPORT INFORMATION
  Report Type: 
  Country: None (occurrence: None)
  Receive Date: 20111027
  Receipt Date: 20101206
  Transmission Date: 20120403
  Serious: No
  Sender: FDA-Public Use
  Company Number: US-AMGEN-KDL293971

PATIENT
  Age: 63 Year
  Sex: Female
  Weight: 57.7 kg

DRUGS (7)
  1. ENBREL [Suspect]
     Dosage: UNK, 2 TIMES/WK
  2. ENBREL [Suspect]
     Indication: RHEUMATOID ARTHRITIS
     Dosage: 50 MG, QWK
     Route: 058
     Dates: start: 20070823
  3. ENBREL [Suspect]
     Dates: start: 20070801
  4. ENBREL [Suspect]
     Dosage: 50 MG, QWK
     Dates: start: 20071001
  5. METHOTREXATE [Concomitant]
     Dosage: 5 MG, QWK
  6. ACETAMINOPHEN AND HYDROCODONE BITARTRATE [Concomitant]
  7. HYDROXYCHLOROQUINE SULFATE [Concomitant]

REACTIONS (7)
  - LOOSE TOOTH [None]
  - LARYNGITIS [None]
  - CHEST DISCOMFORT [None]
  - BRONCHITIS [None]
  - HAND DEFORMITY [None]
  - SKIN REACTION [None]
  - DRUG INEFFECTIVE [None]
